FAERS Safety Report 9374803 (Version 4)
Quarter: 2013Q3

REPORT INFORMATION
  Report Type: Report from Study
  Country: KR (occurrence: KR)
  Receive Date: 20130628
  Receipt Date: 20130816
  Transmission Date: 20140515
  Serious: Yes (Hospitalization)
  Sender: FDA-Public Use
  Company Number: KR-PFIZER INC-2013155993

PATIENT
  Age: 70 Year
  Sex: Female
  Weight: 55.7 kg

DRUGS (7)
  1. CRIZOTINIB [Suspect]
     Indication: NON-SMALL CELL LUNG CANCER
     Dosage: 250 MG, 2X/DAY
     Route: 048
     Dates: start: 20130409, end: 20130519
  2. PEMETREXED [Suspect]
     Indication: NON-SMALL CELL LUNG CANCER
     Dosage: 730 MG, DAY 1 OF 21 DAY CYCLE
     Route: 042
     Dates: start: 20120914, end: 20121004
  3. CISPLATIN [Suspect]
     Indication: NON-SMALL CELL LUNG CANCER
     Dosage: 110 MG, DAY 1 OF 21 DAY CYCLE
     Route: 042
     Dates: start: 20120914, end: 20121004
  4. THIOCTIC ACID [Concomitant]
     Indication: DIABETES MELLITUS
     Dosage: UNK
     Dates: start: 20120727
  5. VALSARTAN [Concomitant]
     Indication: HYPERTENSION
     Dosage: UNK
     Dates: start: 2007
  6. AMARYL-M [Concomitant]
     Indication: DIABETES MELLITUS
     Dosage: UNK
     Dates: start: 20120813
  7. SITAGLIPTIN [Concomitant]
     Indication: DIABETES MELLITUS
     Dosage: UNK
     Dates: start: 20120813

REACTIONS (4)
  - Autoimmune haemolytic anaemia [Recovered/Resolved]
  - Hyperglycaemia [Recovered/Resolved]
  - Drug-induced liver injury [Recovered/Resolved]
  - Electrocardiogram QT prolonged [Recovered/Resolved]
